FAERS Safety Report 19828413 (Version 1)
Quarter: 2021Q3

REPORT INFORMATION
  Report Type: Report from Study
  Country: DE (occurrence: DE)
  Receive Date: 20210914
  Receipt Date: 20210914
  Transmission Date: 20211014
  Serious: Yes (Death, Life-Threatening, Hospitalization, Other)
  Sender: FDA-Public Use
  Company Number: DE-MYLANLABS-2021M1060873

PATIENT
  Age: 9 Year
  Sex: Male
  Weight: 29.3 kg

DRUGS (31)
  1. VENETOCLAX. [Suspect]
     Active Substance: VENETOCLAX
     Dosage: 250 MILLIGRAM, QD
     Route: 048
     Dates: start: 20190307, end: 20190307
  2. PIPERACILLIN/TAZOBACTAM [Concomitant]
     Active Substance: PIPERACILLIN SODIUM\TAZOBACTAM SODIUM
     Indication: FEBRILE NEUTROPENIA
     Dosage: 3.3 GRAM, TID
     Route: 042
     Dates: start: 20190304, end: 20190312
  3. TEICOPLANIN [Concomitant]
     Active Substance: TEICOPLANIN
     Indication: ANTIBIOTIC PROPHYLAXIS
     Dosage: 450 MG, EVERY OTHER DAY
     Route: 042
     Dates: start: 20181219
  4. METAMIZOLE [Concomitant]
     Active Substance: METAMIZOLE
     Indication: PRODUCT USED FOR UNKNOWN INDICATION
     Dosage: 500 MG, 4 IN 1 D
     Route: 048
     Dates: start: 20190305, end: 20190311
  5. VERGENTAN [Concomitant]
     Active Substance: ALIZAPRIDE HYDROCHLORIDE
     Indication: NAUSEA
     Dosage: 50 MILLIGRAM, PRN
     Route: 030
     Dates: start: 20190308, end: 20190310
  6. ZOFRAN [Concomitant]
     Active Substance: ONDANSETRON HYDROCHLORIDE
     Dosage: 2 MILLIGRAM, QD
     Route: 042
     Dates: start: 20190304
  7. PEGASPARGASE [Suspect]
     Active Substance: PEGASPARGASE
     Indication: NEOPLASM MALIGNANT
     Dosage: 2500 IU/M2, ONCE
     Route: 042
     Dates: start: 20190309, end: 20190309
  8. CLEMASTINE [Concomitant]
     Active Substance: CLEMASTINE
     Indication: PREMEDICATION
     Dosage: 2 MILLIGRAM, PRN
     Route: 042
     Dates: start: 20190305, end: 20190309
  9. ACICLOVIR [Concomitant]
     Active Substance: ACYCLOVIR
     Indication: ANTIVIRAL PROPHYLAXIS
     Dosage: 600 MG, 3 IN 1 D
     Route: 048
     Dates: start: 20181228
  10. PANTOPRAZOLE [Concomitant]
     Active Substance: PANTOPRAZOLE
     Indication: PROPHYLAXIS
     Dosage: 20 MG, 1 IN 1 D
     Route: 048
     Dates: start: 20180406
  11. MACROGOL [Concomitant]
     Active Substance: POLYETHYLENE GLYCOLS
     Indication: CONSTIPATION
     Dosage: 1 DOSAGE FORM  (1 SACHET,AS REQUIRED)
     Route: 048
     Dates: start: 20190305, end: 20190326
  12. TRIMETHOPRIM SULFAMETHOXAZOLE [Concomitant]
     Active Substance: SULFAMETHOXAZOLE\TRIMETHOPRIM
     Indication: ANTIBIOTIC PROPHYLAXIS
     Dosage: 160 MG, 2 IN 1 WK
     Route: 048
     Dates: start: 20180406, end: 20190324
  13. ETOPOSIDE. [Suspect]
     Active Substance: ETOPOSIDE
     Indication: NEOPLASM MALIGNANT
     Dosage: 100 MILLIGRAM/SQ. METER, TOTAL
     Route: 042
     Dates: start: 20190309, end: 20190309
  14. VENETOCLAX. [Suspect]
     Active Substance: VENETOCLAX
     Dosage: 500 MILLIGRAM, QD
     Route: 048
     Dates: start: 20190308, end: 20190319
  15. VENETOCLAX. [Suspect]
     Active Substance: VENETOCLAX
     Dosage: 350 MILLIGRAM, QD
     Route: 048
     Dates: start: 20190320, end: 20190326
  16. VENETOCLAX. [Suspect]
     Active Substance: VENETOCLAX
     Dosage: 350 MILLIGRAM, QD
     Route: 048
     Dates: start: 20190322, end: 20190326
  17. PIPERACILLIN/TAZOBACTAM [Concomitant]
     Active Substance: PIPERACILLIN SODIUM\TAZOBACTAM SODIUM
     Indication: ANTIBIOTIC PROPHYLAXIS
  18. AMPHOTERICIN B. [Concomitant]
     Active Substance: AMPHOTERICIN B
     Indication: ANTIFUNGAL PROPHYLAXIS
     Dosage: UNK
     Route: 048
  19. SODIUM PICOSULFATE [Concomitant]
     Active Substance: SODIUM PICOSULFATE
     Indication: CONSTIPATION
     Dosage: 10 DROP, PRN
     Route: 048
     Dates: start: 20190305, end: 20190326
  20. MORPHINE [Concomitant]
     Active Substance: MORPHINE
     Indication: BONE PAIN
     Dosage: 1 MG, 2 IN 1 D
     Route: 042
     Dates: start: 20190304, end: 20190307
  21. ZOFRAN [Concomitant]
     Active Substance: ONDANSETRON HYDROCHLORIDE
     Indication: NAUSEA
     Dosage: 6 MG, AS REQUIRED
     Route: 048
     Dates: start: 20190116, end: 20190303
  22. CYTARABINE. [Suspect]
     Active Substance: CYTARABINE
     Indication: ACUTE LYMPHOCYTIC LEUKAEMIA
     Dosage: UNK
     Route: 065
     Dates: start: 20180404, end: 20181207
  23. METAMIZOLE [Concomitant]
     Active Substance: METAMIZOLE
     Dosage: 1000 MILLIGRAM, QD (500 MG, 2 IN 1 D  )
     Route: 048
     Dates: start: 20190304, end: 20190304
  24. ZOFRAN [Concomitant]
     Active Substance: ONDANSETRON HYDROCHLORIDE
     Indication: NAUSEA
     Dosage: 1 MILLIGRAM, BID
     Route: 042
     Dates: start: 20190304
  25. KALINOR                            /00031402/ [Concomitant]
     Active Substance: POTASSIUM CHLORIDE
     Indication: MINERAL SUPPLEMENTATION
     Dosage: 40 MMOL, AS REQUIRED
     Route: 048
     Dates: start: 20190126
  26. AMBISOME [Concomitant]
     Active Substance: AMPHOTERICIN B
     Indication: PROPHYLAXIS
     Dosage: 32 MG, EVERY OTHER DAY
     Route: 042
     Dates: start: 20181229, end: 20190325
  27. VOMEX A [Concomitant]
     Active Substance: DIMENHYDRINATE
     Indication: NAUSEA
     Dosage: 4 ML, AS REQUIRED
     Route: 042
     Dates: start: 20190310, end: 20190311
  28. CYTARABINE. [Suspect]
     Active Substance: CYTARABINE
     Dosage: 108 MILLIGRAM, QD
     Route: 042
     Dates: start: 20190309, end: 20190312
  29. CYTARABINE. [Suspect]
     Active Substance: CYTARABINE
     Dosage: 108 MILLIGRAM, QD
     Route: 042
     Dates: start: 20190313, end: 20190315
  30. VENETOCLAX. [Suspect]
     Active Substance: VENETOCLAX
     Indication: NEOPLASM MALIGNANT
     Dosage: 120 MILLIGRAM, QD
     Route: 048
     Dates: start: 20190306, end: 20190306
  31. JONOSTERIL                         /00351401/ [Concomitant]
     Active Substance: CALCIUM ACETATE\MAGNESIUM ACETATE\POTASSIUM ACETATE\SODIUM ACETATE\SODIUM CHLORI
     Indication: FLUID REPLACEMENT
     Dosage: CONTINUOUS (1 LIT)
     Route: 042
     Dates: start: 20190304, end: 20190307

REACTIONS (7)
  - Malignant neoplasm progression [Fatal]
  - Hepatosplenomegaly [Unknown]
  - Abdominal pain [Fatal]
  - Pyrexia [Fatal]
  - Febrile neutropenia [Recovered/Resolved]
  - Multiple organ dysfunction syndrome [Fatal]
  - Sepsis [Fatal]

NARRATIVE: CASE EVENT DATE: 20190320
